FAERS Safety Report 11904456 (Version 1)
Quarter: 2016Q1

REPORT INFORMATION
  Report Type: Spontaneous
  Country: US (occurrence: US)
  Receive Date: 20160111
  Receipt Date: 20160111
  Transmission Date: 20160526
  Serious: No
  Sender: FDA-Public Use
  Company Number: US-ASTRAZENECA-2016SE00085

PATIENT
  Sex: Female
  Weight: 67.1 kg

DRUGS (5)
  1. HCTZ [Concomitant]
     Active Substance: HYDROCHLOROTHIAZIDE
     Dosage: DAILY
  2. CRESTOR [Suspect]
     Active Substance: ROSUVASTATIN CALCIUM
     Dosage: CRESTOR IS A HALF TAB 5 NIGHTS A WEEK MONDAY THROUGH FRIDAY.
     Route: 048
  3. BYDUREON [Suspect]
     Active Substance: EXENATIDE
     Indication: TYPE 2 DIABETES MELLITUS
     Route: 058
     Dates: start: 20151227, end: 20151227
  4. GLIPIZIDE. [Concomitant]
     Active Substance: GLIPIZIDE
  5. VICTOZA [Concomitant]
     Active Substance: LIRAGLUTIDE
     Dates: end: 20151225

REACTIONS (7)
  - Abdominal distension [Unknown]
  - Dyspnoea [Unknown]
  - Vomiting [Unknown]
  - Abdominal pain upper [Unknown]
  - Panic attack [Unknown]
  - Flatulence [Unknown]
  - Malaise [Unknown]
